FAERS Safety Report 6062756-4 (Version None)
Quarter: 2009Q1

REPORT INFORMATION
  Report Type: 
  Country: None (occurrence: None)
  Receive Date: 20090202
  Receipt Date: 20090202
  Transmission Date: 20090719
  Serious: Yes (Hospitalization)
  Sender: FDA-Public Use
  Company Number: None

PATIENT
  Age: 55 Year
  Sex: Female
  Weight: 63.9572 kg

DRUGS (1)
  1. CLARITHROMYCIN [Suspect]
     Indication: UPPER RESPIRATORY TRACT INFECTION

REACTIONS (3)
  - ABDOMINAL PAIN [None]
  - CHROMATURIA [None]
  - LIVER FUNCTION TEST ABNORMAL [None]
